FAERS Safety Report 24916440 (Version 5)
Quarter: 2025Q3

REPORT INFORMATION
  Report Type: Report from Study
  Country: US (occurrence: US)
  Receive Date: 20250203
  Receipt Date: 20250913
  Transmission Date: 20251020
  Serious: Yes (Other)
  Sender: UCB
  Company Number: US-UCBSA-2024065571

PATIENT
  Sex: Female
  Weight: 109 kg

DRUGS (7)
  1. FINTEPLA [Suspect]
     Active Substance: FENFLURAMINE
     Indication: Epilepsy
     Dosage: 6 MILLILITER, 2X/DAY (BID)
     Dates: start: 20240208
  2. FINTEPLA [Suspect]
     Active Substance: FENFLURAMINE
     Indication: Seizure
     Dates: start: 20240130, end: 20240730
  3. FINTEPLA [Suspect]
     Active Substance: FENFLURAMINE
     Indication: Lennox-Gastaut syndrome
     Dates: start: 20240730, end: 20250130
  4. FINTEPLA [Suspect]
     Active Substance: FENFLURAMINE
     Dosage: 6 MILLILITER, 2X/DAY (BID)
  5. FINTEPLA [Suspect]
     Active Substance: FENFLURAMINE
     Dosage: 26.4 MILLIGRAM, ONCE DAILY (QD)
     Dates: end: 20250130
  6. FINTEPLA [Suspect]
     Active Substance: FENFLURAMINE
     Dosage: 6 MILLILITER, 2X/DAY (BID)
  7. DILANTIN [Concomitant]
     Active Substance: PHENYTOIN
     Indication: Product used for unknown indication

REACTIONS (7)
  - Aortic valve incompetence [Not Recovered/Not Resolved]
  - Tricuspid valve incompetence [Unknown]
  - Pericardial effusion [Unknown]
  - Lennox-Gastaut syndrome [Not Recovered/Not Resolved]
  - Feeling abnormal [Recovering/Resolving]
  - Lethargy [Recovered/Resolved]
  - Drug ineffective [Unknown]

NARRATIVE: CASE EVENT DATE: 20240101
